FAERS Safety Report 12598616 (Version 1)
Quarter: 2016Q3

REPORT INFORMATION
  Report Type: Spontaneous
  Country: US (occurrence: US)
  Receive Date: 20160726
  Receipt Date: 20160726
  Transmission Date: 20161109
  Serious: No
  Sender: FDA-Public Use
  Company Number: US-009507513-1607USA010270

PATIENT
  Sex: Female

DRUGS (1)
  1. NEXPLANON [Suspect]
     Active Substance: ETONOGESTREL
     Indication: CONTRACEPTION
     Dosage: DOSE/FREQUENCY REPORTEDAS 1 ROD/EVERY 3 YEARS
     Route: 059

REACTIONS (3)
  - Migration of implanted drug [Not Recovered/Not Resolved]
  - Complication associated with device [Not Recovered/Not Resolved]
  - Obesity [Not Recovered/Not Resolved]
